FAERS Safety Report 9745105 (Version 1)
Quarter: 2013Q4

REPORT INFORMATION
  Report Type: Spontaneous
  Country: US (occurrence: US)
  Receive Date: 20131211
  Receipt Date: 20131211
  Transmission Date: 20140711
  Serious: Yes (Other)
  Sender: FDA-Public Use
  Company Number: US-AMGEN-USASP2013086005

PATIENT
  Sex: Female

DRUGS (1)
  1. XGEVA [Suspect]
     Indication: METASTASES TO BONE
     Route: 065

REACTIONS (1)
  - Foot fracture [Unknown]
